FAERS Safety Report 7580299-3 (Version None)
Quarter: 2011Q2

REPORT INFORMATION
  Report Type: 
  Country: None (occurrence: None)
  Receive Date: 20110622
  Receipt Date: 20110607
  Transmission Date: 20111010
  Serious: Yes (Hospitalization, Other)
  Sender: FDA-Public Use
  Company Number: AUR-APL-2009-00930

PATIENT
  Age: 47 Year
  Sex: Female
  Weight: 102 kg

DRUGS (7)
  1. CLONAZEPAM [Concomitant]
  2. DEPAKOTE [Concomitant]
  3. SERETIDE (FLUTICASONE PROPIONATE W/SALMETEROL) [Concomitant]
  4. SERTRALINE (SERTRALINE) (SERTRALINE, SERTRALINE) [Suspect]
     Indication: DEPRESSION
     Dosage: 200 MG (200 MG,1 IN 1 D),ORAL
     Route: 048
  5. QUETIAPINE FUMARATE [Concomitant]
  6. CLOZARIL [Suspect]
     Indication: SCHIZOPHRENIA
     Dosage: 300 MG (150 MG,2 IN 1 D),ORAL
     Route: 048
     Dates: start: 20080909, end: 20081005
  7. LAMOTRIGINE [Concomitant]

REACTIONS (6)
  - C-REACTIVE PROTEIN INCREASED [None]
  - ASTHMA [None]
  - MONOCYTE COUNT INCREASED [None]
  - LOWER RESPIRATORY TRACT INFECTION [None]
  - BODY TEMPERATURE INCREASED [None]
  - OXYGEN SATURATION DECREASED [None]
